FAERS Safety Report 21977200 (Version 1)
Quarter: 2023Q1

REPORT INFORMATION
  Report Type: Other
  Country: DE (occurrence: None)
  Receive Date: 20230210
  Receipt Date: 20230210
  Transmission Date: 20230418
  Serious: Yes (Life-Threatening, Hospitalization)
  Sender: FDA-Public Use
  Company Number: DE-ROCHE-3224324

PATIENT
  Age: 32 Year
  Sex: Female
  Weight: 140.6 kg

DRUGS (10)
  1. OCRELIZUMAB [Suspect]
     Active Substance: OCRELIZUMAB
     Indication: Relapsing-remitting multiple sclerosis
     Route: 042
     Dates: start: 20220318, end: 20220421
  2. PROGESTERONE [Concomitant]
     Active Substance: PROGESTERONE
     Dates: start: 202111, end: 20220828
  3. LEVOTHYROXINE [Concomitant]
     Active Substance: LEVOTHYROXINE
     Dates: start: 202111, end: 20220828
  4. DEQUALINIUM CHLORIDE [Concomitant]
     Active Substance: DEQUALINIUM CHLORIDE
     Dates: start: 20220728, end: 20220829
  5. DIMETHINDENE [Concomitant]
     Active Substance: DIMETHINDENE
     Dates: start: 20220318, end: 20220318
  6. DIMETHINDENE [Concomitant]
     Active Substance: DIMETHINDENE
     Dates: start: 20220421, end: 20220421
  7. ACETAMINOPHEN [Concomitant]
     Active Substance: ACETAMINOPHEN
     Dates: start: 20220318, end: 20220318
  8. ACETAMINOPHEN [Concomitant]
     Active Substance: ACETAMINOPHEN
     Dates: start: 20220421, end: 20220421
  9. CORTISONE [Concomitant]
     Active Substance: CORTISONE
     Dates: start: 20220318, end: 20220318
  10. CORTISONE [Concomitant]
     Active Substance: CORTISONE
     Dates: start: 20220421, end: 20220421

REACTIONS (3)
  - Cervical incompetence [Recovered/Resolved]
  - Maternal exposure before pregnancy [Unknown]
  - Premature delivery [Unknown]

NARRATIVE: CASE EVENT DATE: 20221110
